FAERS Safety Report 10351789 (Version 1)
Quarter: 2014Q3

REPORT INFORMATION
  Report Type: Spontaneous
  Country: US (occurrence: US)
  Receive Date: 20140730
  Receipt Date: 20140730
  Transmission Date: 20150326
  Serious: Yes (Hospitalization, Other)
  Sender: FDA-Public Use
  Company Number: US-PFIZER INC-2014211831

PATIENT
  Age: 83 Year
  Sex: Male
  Weight: 86.17 kg

DRUGS (4)
  1. LYRICA [Suspect]
     Active Substance: PREGABALIN
     Indication: NEURALGIA
     Dosage: 50 MG, DAILY
     Route: 048
     Dates: start: 2011
  2. GLYBURIDE. [Concomitant]
     Active Substance: GLYBURIDE
     Indication: DIABETES MELLITUS
     Dosage: 6 MG, 2X/DAY
  3. CARVEDILOL. [Concomitant]
     Active Substance: CARVEDILOL
     Indication: HYPERTENSION
     Dosage: 6.25 MG, 2X/DAY
  4. PLAVIX [Concomitant]
     Active Substance: CLOPIDOGREL BISULFATE
     Dosage: 75 MG, DAILY
     Dates: start: 1985

REACTIONS (6)
  - Chills [Unknown]
  - Chest pain [Unknown]
  - Atrial fibrillation [Unknown]
  - Chest discomfort [Unknown]
  - Pain in extremity [Unknown]
  - Tremor [Unknown]

NARRATIVE: CASE EVENT DATE: 201407
